FAERS Safety Report 8229680-X (Version None)
Quarter: 2012Q1

REPORT INFORMATION
  Report Type: 
  Country: None (occurrence: None)
  Receive Date: 20120322
  Receipt Date: 20120319
  Transmission Date: 20120608
  Serious: Yes (Death, Hospitalization, Other)
  Sender: FDA-Public Use
  Company Number: PHHY2012IT023227

PATIENT
  Sex: Male

DRUGS (1)
  1. TASIGNA [Suspect]
     Indication: CHRONIC MYELOID LEUKAEMIA
     Dosage: 800 MG PER DAY
     Route: 048
     Dates: start: 20110101, end: 20120223

REACTIONS (9)
  - PNEUMOCOCCAL SEPSIS [None]
  - NEOPLASM MALIGNANT [None]
  - VISUAL ACUITY REDUCED [None]
  - COMA [None]
  - SINUSITIS [None]
  - BALANCE DISORDER [None]
  - HEADACHE [None]
  - CHRONIC MYELOID LEUKAEMIA [None]
  - METASTASES TO CENTRAL NERVOUS SYSTEM [None]
